FAERS Safety Report 19855912 (Version 10)
Quarter: 2022Q3

REPORT INFORMATION
  Report Type: Report from Study
  Country: CN (occurrence: CN)
  Receive Date: 20210920
  Receipt Date: 20220926
  Transmission Date: 20221027
  Serious: Yes (Death, Hospitalization, Other)
  Sender: FDA-Public Use
  Company Number: CN-DSJP-DSE-2021-130330

PATIENT
  Age: 75 Year
  Sex: Female
  Weight: 43 kg

DRUGS (12)
  1. EDOXABAN [Suspect]
     Active Substance: EDOXABAN
     Indication: Atrial fibrillation
     Dosage: 30 MG, QD
     Route: 048
     Dates: start: 20210528, end: 20210714
  2. EDOXABAN [Suspect]
     Active Substance: EDOXABAN
     Dosage: 30 MG, QD
     Route: 048
     Dates: start: 20210811, end: 20210906
  3. EDOXABAN [Suspect]
     Active Substance: EDOXABAN
     Dosage: 30 MG, QD
     Route: 048
     Dates: start: 20211013
  4. UNSPECIFIED INGREDIENT [Concomitant]
     Active Substance: UNSPECIFIED INGREDIENT
     Indication: Hypertension
     Route: 065
  5. SPIRONOLACTONE [Concomitant]
     Active Substance: SPIRONOLACTONE
     Indication: Cardiac failure
     Dosage: 20 MG, QD
     Route: 048
     Dates: start: 20210621
  6. SPIRONOLACTONE [Concomitant]
     Active Substance: SPIRONOLACTONE
     Indication: Polyuria
  7. TORSEMIDE [Concomitant]
     Active Substance: TORSEMIDE
     Indication: Diuretic therapy
     Dosage: 10 MG, QD
     Route: 048
     Dates: start: 20210621, end: 20210810
  8. TORSEMIDE [Concomitant]
     Active Substance: TORSEMIDE
     Indication: Cardiac failure
     Dosage: 10 MG, BID
     Route: 048
     Dates: start: 20210811, end: 20210822
  9. QI LI QIANG XIN [Concomitant]
     Indication: Cardiac failure
     Dosage: 3 CAPSULES, TID
     Route: 048
     Dates: start: 20210729, end: 20210822
  10. YOU LI PING [Concomitant]
     Indication: Hyperlipidaemia
     Dosage: 20 MG, QD
     Route: 048
     Dates: start: 20210811, end: 20210822
  11. SACUBITRIL\VALSARTAN [Concomitant]
     Active Substance: SACUBITRIL\VALSARTAN
     Indication: Hypertension
     Dosage: 25 MG, BID
     Route: 048
     Dates: start: 20210730, end: 20210822
  12. FAMOTIDINE [Concomitant]
     Active Substance: FAMOTIDINE
     Indication: Prophylaxis
     Dosage: 20 MG, BID
     Route: 048
     Dates: start: 20210811, end: 20210822

REACTIONS (6)
  - Impaired healing [Recovered/Resolved]
  - Cardiac failure acute [Fatal]
  - Cardiac failure acute [Recovered/Resolved]
  - Hypoalbuminaemia [Recovered/Resolved]
  - Gouty arthritis [Recovered/Resolved]
  - Cardiac failure [Not Recovered/Not Resolved]

NARRATIVE: CASE EVENT DATE: 20210813
